FAERS Safety Report 5078947-5 (Version None)
Quarter: 2006Q3

REPORT INFORMATION
  Report Type: 
  Country: None (occurrence: None)
  Receive Date: 20060809
  Receipt Date: 20060809
  Transmission Date: 20061208
  Serious: Yes (Hospitalization)
  Sender: FDA-Public Use
  Company Number: None

PATIENT
  Age: 53 Year
  Sex: Female
  Weight: 88.905 kg

DRUGS (1)
  1. ACTONEL [Suspect]
     Dosage: 35MG. WEEKLY PO
     Route: 048
     Dates: start: 20060326, end: 20060326

REACTIONS (5)
  - ARTHRALGIA [None]
  - BONE PAIN [None]
  - MOBILITY DECREASED [None]
  - MUSCULAR WEAKNESS [None]
  - MYALGIA [None]
